FAERS Safety Report 5670657-6 (Version None)
Quarter: 2008Q1

REPORT INFORMATION
  Report Type: 
  Country: None (occurrence: None)
  Receive Date: 20080314
  Receipt Date: 20080314
  Transmission Date: 20080703
  Serious: No
  Sender: FDA-Public Use
  Company Number: None

PATIENT
  Age: 58 Year
  Sex: Female
  Weight: 74 kg

DRUGS (1)
  1. TAXOTERE [Suspect]
     Indication: BREAST CANCER FEMALE
     Dosage: 135MG ONCE IV
     Route: 042
     Dates: start: 20080102, end: 20080102

REACTIONS (6)
  - BACK PAIN [None]
  - BURNING SENSATION [None]
  - CHEST PAIN [None]
  - DEFAECATION URGENCY [None]
  - FLUSHING [None]
  - INFUSION RELATED REACTION [None]
